FAERS Safety Report 5230383-4 (Version None)
Quarter: 2007Q1

REPORT INFORMATION
  Report Type: 
  Country: None (occurrence: None)
  Receive Date: 20070201
  Receipt Date: 20070117
  Transmission Date: 20070707
  Serious: Yes (Hospitalization)
  Sender: FDA-Public Use
  Company Number: S06-FRA-04081-01

PATIENT
  Age: 81 Year
  Sex: Female

DRUGS (3)
  1. SEROPLEX (ESCITALOPRAM) [Suspect]
     Indication: DEPRESSION
     Dosage: 10 MG QD PO
     Route: 048
     Dates: start: 20060627, end: 20060827
  2. EXELON [Concomitant]
  3. BASDENE (BENZYLTHIOURACIL) [Concomitant]

REACTIONS (8)
  - APATHY [None]
  - ASTHENIA [None]
  - FALL [None]
  - HYPONATRAEMIA [None]
  - INCONTINENCE [None]
  - LOSS OF CONSCIOUSNESS [None]
  - ORTHOSTATIC HYPOTENSION [None]
  - URINARY TRACT INFECTION [None]
